FAERS Safety Report 4710475-6 (Version None)
Quarter: 2005Q3

REPORT INFORMATION
  Report Type: 
  Country: None (occurrence: None)
  Receive Date: 20050707
  Receipt Date: 20050617
  Transmission Date: 20060218
  Serious: Yes (Death)
  Sender: FDA-Public Use
  Company Number: CA_050608343

PATIENT
  Sex: Male

DRUGS (1)
  1. XIGRIS [Suspect]

REACTIONS (1)
  - DEATH [None]
